FAERS Safety Report 4633104-9 (Version None)
Quarter: 2005Q2

REPORT INFORMATION
  Report Type: 
  Country: None (occurrence: None)
  Receive Date: 20050412
  Receipt Date: 20050216
  Transmission Date: 20051028
  Serious: Yes (Hospitalization, Other)
  Sender: FDA-Public Use
  Company Number: US-GLAXOSMITHKLINE-A0545940A

PATIENT
  Age: 60 Year
  Sex: Female
  Weight: 68.2 kg

DRUGS (7)
  1. LAMICTAL [Suspect]
     Indication: BIPOLAR DISORDER
     Route: 048
     Dates: start: 20040101, end: 20050201
  2. DEPAKOTE [Suspect]
     Dosage: 500MG UNKNOWN
     Route: 048
     Dates: start: 20041101, end: 20050201
  3. LITHIUM CARBONATE [Suspect]
  4. EFFEXOR [Concomitant]
     Dosage: 225MG PER DAY
  5. MULTIPLE MEDICATIONS [Concomitant]
  6. CLONAZEPAM [Concomitant]
     Dosage: .5MG AT NIGHT
  7. ABILIFY [Concomitant]
     Dates: end: 20050201

REACTIONS (8)
  - BLOOD POTASSIUM ABNORMAL [None]
  - BRADYPHRENIA [None]
  - DEPRESSIVE SYMPTOM [None]
  - DRUG INTERACTION [None]
  - HYPERNATRAEMIA [None]
  - HYPOTHYROIDISM [None]
  - LEUKOCYTOSIS [None]
  - RENAL FAILURE [None]
